FAERS Safety Report 6142789-X (Version None)
Quarter: 2009Q2

REPORT INFORMATION
  Report Type: 
  Country: None (occurrence: None)
  Receive Date: 20090403
  Receipt Date: 20090324
  Transmission Date: 20091009
  Serious: Yes (Disabling, Other)
  Sender: FDA-Public Use
  Company Number: IL-AMGEN-US340674

PATIENT
  Sex: Female

DRUGS (5)
  1. ENBREL [Suspect]
     Indication: RHEUMATOID ARTHRITIS
     Route: 058
     Dates: start: 20081101
  2. COLCHICINE [Concomitant]
     Route: 065
  3. SULFASALAZINE [Concomitant]
     Route: 065
  4. METHOTREXATE [Concomitant]
     Route: 065
  5. HYDROXYCHLOROQUINE [Concomitant]
     Route: 065

REACTIONS (3)
  - BLINDNESS UNILATERAL [None]
  - UVEITIS [None]
  - VASCULITIS [None]
